FAERS Safety Report 6182214-6 (Version None)
Quarter: 2009Q2

REPORT INFORMATION
  Report Type: 
  Country: None (occurrence: None)
  Receive Date: 20090505
  Receipt Date: 20090427
  Transmission Date: 20091009
  Serious: Yes (Death)
  Sender: FDA-Public Use
  Company Number: 2005JP002196

PATIENT
  Age: 55 Year
  Sex: Male

DRUGS (7)
  1. PROGRAF [Suspect]
     Indication: LIVER TRANSPLANT
  2. CYCLOPHOSPHAMIDE [Concomitant]
  3. STEROID [Concomitant]
  4. CELLCEPT [Concomitant]
  5. PGE 1 (ALPROSTADIL) [Concomitant]
  6. FRAGMIN [Concomitant]
  7. THYMOGLOBULIN [Concomitant]

REACTIONS (4)
  - CATHETER RELATED INFECTION [None]
  - CHOLANGITIS [None]
  - SEPSIS [None]
  - STAPHYLOCOCCAL INFECTION [None]
